FAERS Safety Report 9314497 (Version 2)
Quarter: 2013Q2

REPORT INFORMATION
  Report Type: Spontaneous
  Country: JP (occurrence: JP)
  Receive Date: 20130529
  Receipt Date: 20130618
  Transmission Date: 20140414
  Serious: Yes (Hospitalization)
  Sender: FDA-Public Use
  Company Number: JP-PFIZER INC-2013161333

PATIENT
  Age: 5 Year
  Sex: Male

DRUGS (2)
  1. GENOTROPIN TC [Suspect]
     Indication: DWARFISM
     Dosage: 0.9 MG, 1X/DAY
     Route: 058
     Dates: end: 20130605
  2. GENOTROPIN TC [Suspect]
     Indication: RENAL FAILURE CHRONIC

REACTIONS (1)
  - Renal failure [Unknown]
